FAERS Safety Report 6258691-9 (Version None)
Quarter: 2009Q3

REPORT INFORMATION
  Report Type: 
  Country: None (occurrence: None)
  Receive Date: 20090707
  Receipt Date: 20090629
  Transmission Date: 20100115
  Serious: Yes (Congenital Anomaly)
  Sender: FDA-Public Use
  Company Number: A0679755A

PATIENT
  Sex: Male

DRUGS (5)
  1. PAXIL [Suspect]
     Indication: ANXIETY
  2. PAXIL CR [Suspect]
     Indication: PANIC ATTACK
     Dosage: 25MG PER DAY
     Dates: start: 20040801, end: 20041201
  3. VITAMIN TAB [Concomitant]
  4. PHENERGAN [Concomitant]
  5. MACROBID [Concomitant]
     Dates: start: 20050503

REACTIONS (4)
  - CARDIAC MURMUR [None]
  - CONGENITAL OESOPHAGEAL ANOMALY [None]
  - DRUG EXPOSURE DURING PREGNANCY [None]
  - MULTIPLE CONGENITAL ABNORMALITIES [None]
